FAERS Safety Report 24543213 (Version 1)
Quarter: 2024Q4

REPORT INFORMATION
  Report Type: Spontaneous
  Country: FR (occurrence: FR)
  Receive Date: 20241024
  Receipt Date: 20241024
  Transmission Date: 20250115
  Serious: Yes (Life-Threatening)
  Sender: RANBAXY
  Company Number: FR-SUN PHARMACEUTICAL INDUSTRIES LTD-2024RR-474520

PATIENT
  Age: 20 Day
  Sex: Male
  Weight: 4.1 kg

DRUGS (2)
  1. MORPHINE [Suspect]
     Active Substance: MORPHINE
     Indication: Pain
     Dosage: 50 MICROGRAM/KILOGRAM, IN TOTAL
     Route: 040
     Dates: start: 20240826
  2. MORPHINE [Concomitant]
     Active Substance: MORPHINE
     Indication: Pain
     Dosage: 0.02 MILLIGRAM
     Route: 040
     Dates: start: 20240826

REACTIONS (5)
  - Bradypnoea [Recovered/Resolved]
  - Malaise [Recovered/Resolved]
  - Incorrect dose administered [Recovered/Resolved]
  - Respiratory distress [Recovered/Resolved]
  - Device programming error [Recovered/Resolved]

NARRATIVE: CASE EVENT DATE: 20240826
